FAERS Safety Report 7281818-7 (Version None)
Quarter: 2011Q1

REPORT INFORMATION
  Report Type: 
  Country: None (occurrence: None)
  Receive Date: 20110208
  Receipt Date: 20110203
  Transmission Date: 20110831
  Serious: Yes (Other)
  Sender: FDA-Public Use
  Company Number: FR-PFIZER INC-2011024762

PATIENT
  Sex: Male

DRUGS (1)
  1. LYRICA [Suspect]
     Dosage: MORE THAN 300 MG DAILY

REACTIONS (3)
  - DRUG WITHDRAWAL SYNDROME [None]
  - DEPRESSION [None]
  - SUICIDAL IDEATION [None]
